FAERS Safety Report 4343608-4 (Version None)
Quarter: 2004Q2

REPORT INFORMATION
  Report Type: 
  Country: None (occurrence: None)
  Receive Date: 20040422
  Receipt Date: 20040414
  Transmission Date: 20050107
  Serious: Yes (Hospitalization)
  Sender: FDA-Public Use
  Company Number: 200412967US

PATIENT
  Age: 86 Year
  Sex: Male

DRUGS (4)
  1. ALLEGRA [Suspect]
     Indication: RASH
     Dosage: DOSE: UNK
     Route: 048
     Dates: start: 20040301, end: 20040301
  2. COREG [Concomitant]
     Dosage: DOSE: UNK
  3. MULTIVITAMINS, PLAIN [Concomitant]
     Dosage: DOSE: UNK
  4. UNKNOWN DRUG [Concomitant]
     Dosage: DOSE: UNK

REACTIONS (1)
  - HALLUCINATION [None]
